FAERS Safety Report 15334108 (Version 1)
Quarter: 2018Q3

REPORT INFORMATION
  Report Type: Spontaneous
  Country: ES (occurrence: ES)
  Receive Date: 20180830
  Receipt Date: 20180830
  Transmission Date: 20181010
  Serious: Yes (Other)
  Sender: FDA-Public Use
  Company Number: PHHY2018ES082710

PATIENT
  Age: 54 Year
  Sex: Female

DRUGS (4)
  1. BARICITINIB [Suspect]
     Active Substance: BARICITINIB
     Dosage: 1 DF, UNKNOWN
     Route: 048
  2. ATORVASTATIN [Suspect]
     Active Substance: ATORVASTATIN
     Dosage: 40 MG, UNKNOWN
     Route: 065
  3. ATORVASTATIN [Suspect]
     Active Substance: ATORVASTATIN
     Indication: PRODUCT USED FOR UNKNOWN INDICATION
     Dosage: 30 MG, UNK
     Route: 065
  4. BARICITINIB [Suspect]
     Active Substance: BARICITINIB
     Indication: RHEUMATOID ARTHRITIS
     Dosage: UNK
     Route: 048

REACTIONS (6)
  - Blood cholesterol abnormal [Recovering/Resolving]
  - Platelet count increased [Unknown]
  - Transaminases increased [Recovering/Resolving]
  - White blood cell disorder [Recovering/Resolving]
  - Nervousness [Unknown]
  - Gastroenteritis [Recovering/Resolving]

NARRATIVE: CASE EVENT DATE: 20180424
